FAERS Safety Report 8777868 (Version 4)
Quarter: 2013Q2

REPORT INFORMATION
  Report Type: Report from Study
  Country: US (occurrence: US)
  Receive Date: 20120912
  Receipt Date: 20130603
  Transmission Date: 20140414
  Serious: No
  Sender: FDA-Public Use
  Company Number: US-VERTEX PHARMACEUTICAL INC.-AE-2012-003161

PATIENT
  Age: 60 Year
  Sex: Female

DRUGS (12)
  1. VX-950 (TELAPREVIR) [Suspect]
     Indication: HEPATITIS C
     Dosage: 750 MG, TID
     Route: 048
     Dates: start: 20120227, end: 20120521
  2. PEGASYS [Suspect]
     Indication: HEPATITIS C
     Dosage: 180 ?G/0.5ML, QW
     Route: 058
     Dates: start: 20120227, end: 20130128
  3. RIBAPAK [Suspect]
     Indication: HEPATITIS C
     Dosage: 600 UNK, UNK
     Route: 048
     Dates: start: 20120227
  4. RIBAPAK [Suspect]
     Dosage: 600 MG, UNK
  5. RIBAPAK [Suspect]
     Dosage: 400MD QAM, 400MGQPM
     Dates: end: 20130128
  6. CALCIUM [Concomitant]
     Dosage: 600 MG, QD
  7. MILK THISTLE [Concomitant]
     Dosage: 175 MG, TID
  8. MULTIVITAMINS [Concomitant]
     Dosage: UNK, QD
  9. ZOLPIDEM [Concomitant]
     Dosage: 5 MG, UNK
  10. TRIAMCINOLONE CREAM [Concomitant]
  11. SERTRALINE [Concomitant]
     Dosage: 50 MG, UNK
  12. FOLIC ACID [Concomitant]
     Dosage: 1 MG, BID

REACTIONS (7)
  - Contusion [Not Recovered/Not Resolved]
  - Insomnia [Not Recovered/Not Resolved]
  - Dry skin [Not Recovered/Not Resolved]
  - Lethargy [Not Recovered/Not Resolved]
  - Fatigue [Not Recovered/Not Resolved]
  - Anaemia [Recovered/Resolved]
  - Nausea [Not Recovered/Not Resolved]
